FAERS Safety Report 25132232 (Version 2)
Quarter: 2025Q3

REPORT INFORMATION
  Report Type: Spontaneous
  Country: EU (occurrence: EU)
  Receive Date: 20250328
  Receipt Date: 20250803
  Transmission Date: 20251021
  Serious: Yes (Other)
  Sender: ALEXION PHARMACEUTICALS
  Company Number: EU-ASTELLAS-2025-AER-014380

PATIENT
  Sex: Male

DRUGS (3)
  1. TAGRISSO [Suspect]
     Active Substance: OSIMERTINIB
     Indication: Lung neoplasm malignant
  2. TAGRISSO [Suspect]
     Active Substance: OSIMERTINIB
     Route: 065
  3. ENZALUTAMIDE [Suspect]
     Active Substance: ENZALUTAMIDE
     Indication: Prostate cancer
     Route: 065
     Dates: start: 201807

REACTIONS (4)
  - Lung adenocarcinoma [Unknown]
  - Nausea [Unknown]
  - Oedema [Unknown]
  - Rash [Unknown]
